FAERS Safety Report 4280472-6 (Version None)
Quarter: 2004Q1

REPORT INFORMATION
  Report Type: 
  Country: None (occurrence: None)
  Receive Date: 20040128
  Receipt Date: 20040128
  Transmission Date: 20041129
  Serious: No
  Sender: FDA-Public Use
  Company Number: None

PATIENT
  Sex: Male

DRUGS (1)
  1. BUSPIRONE HCL [Suspect]
     Indication: PREMENSTRUAL SYNDROME
     Dosage: 1/2 TAB AM AND 1 LUNCH
     Dates: start: 20040114

REACTIONS (3)
  - IRRITABILITY [None]
  - PHARMACEUTICAL PRODUCT COMPLAINT [None]
  - POLLAKIURIA [None]
